FAERS Safety Report 5991167-2 (Version None)
Quarter: 2008Q4

REPORT INFORMATION
  Report Type: 
  Country: None (occurrence: None)
  Receive Date: 20081202
  Receipt Date: 20080505
  Transmission Date: 20090506
  Serious: Yes (Hospitalization)
  Sender: FDA-Public Use
  Company Number: WAES 0805USA00924

PATIENT
  Sex: Male

DRUGS (1)
  1. FOSAMAX [Suspect]
     Dosage: PO
     Route: 048
     Dates: start: 20040101, end: 20070426

REACTIONS (4)
  - DENTAL CARIES [None]
  - OSTEOMYELITIS [None]
  - OSTEONECROSIS [None]
  - TOOTH DISORDER [None]
